FAERS Safety Report 18584623 (Version 1)
Quarter: 2020Q4

REPORT INFORMATION
  Report Type: Spontaneous
  Country: SE (occurrence: SE)
  Receive Date: 20201207
  Receipt Date: 20201207
  Transmission Date: 20210114
  Serious: Yes (Death)
  Sender: FDA-Public Use
  Company Number: NVSC2020SE324073

PATIENT
  Age: 65 Year
  Sex: Male

DRUGS (19)
  1. OXALIPLATIN. [Suspect]
     Active Substance: OXALIPLATIN
     Indication: PRODUCT USED FOR UNKNOWN INDICATION
     Dosage: UNK
     Route: 065
     Dates: start: 20200908
  2. HYDROCHLOROTHIAZIDE. [Concomitant]
     Active Substance: HYDROCHLOROTHIAZIDE
     Indication: PRODUCT USED FOR UNKNOWN INDICATION
     Dosage: 25 MG,QD
     Route: 065
     Dates: start: 20170908
  3. ATORVASTATIN [Concomitant]
     Active Substance: ATORVASTATIN
     Indication: PRODUCT USED FOR UNKNOWN INDICATION
     Dosage: 20 MG,QD
     Route: 065
     Dates: start: 20180721
  4. METFORMIN [Concomitant]
     Active Substance: METFORMIN HYDROCHLORIDE
     Indication: PRODUCT USED FOR UNKNOWN INDICATION
     Dosage: 2550 MG,QD
     Route: 065
     Dates: start: 20170907
  5. RAMIPRIL. [Concomitant]
     Active Substance: RAMIPRIL
     Indication: PRODUCT USED FOR UNKNOWN INDICATION
     Dosage: 10 MG,QD
     Route: 065
     Dates: start: 20170908
  6. BETNOVAT [Concomitant]
     Active Substance: BETAMETHASONE
     Dosage: UNK
     Route: 065
     Dates: start: 20171129
  7. BRICANYL [Concomitant]
     Active Substance: TERBUTALINE SULFATE
     Indication: PRODUCT USED FOR UNKNOWN INDICATION
     Dosage: UNK (1 INHALATION VID BEHOV)
     Route: 065
     Dates: start: 20190206
  8. JANUVIA [Concomitant]
     Active Substance: SITAGLIPTIN PHOSPHATE
     Indication: PRODUCT USED FOR UNKNOWN INDICATION
     Dosage: 100 MG,QD
     Route: 065
     Dates: start: 20170908
  9. CAPECITABINE. [Suspect]
     Active Substance: CAPECITABINE
     Indication: PRODUCT USED FOR UNKNOWN INDICATION
     Dosage: UNK
     Route: 065
     Dates: start: 20200908, end: 20201011
  10. BETNOVAT [Concomitant]
     Active Substance: BETAMETHASONE
     Indication: PRODUCT USED FOR UNKNOWN INDICATION
     Dosage: KUTAN EMULSION
     Route: 065
     Dates: start: 20171129
  11. MINDIAB [Concomitant]
     Active Substance: GLIPIZIDE
     Indication: PRODUCT USED FOR UNKNOWN INDICATION
     Dosage: 10 MG,QD
     Route: 065
     Dates: start: 20170908
  12. LORATADINE. [Concomitant]
     Active Substance: LORATADINE
     Indication: PRODUCT USED FOR UNKNOWN INDICATION
     Dosage: 1 DF, PRN (UNK (1 TABLETT VID BEHOV)
     Route: 065
     Dates: start: 20170907
  13. OMEPRAZOLE. [Concomitant]
     Active Substance: OMEPRAZOLE
     Indication: PRODUCT USED FOR UNKNOWN INDICATION
     Dosage: 40 MG,QD
     Route: 065
     Dates: start: 20170908
  14. BUFOMIX [Concomitant]
     Active Substance: BUDESONIDE\FORMOTEROL FUMARATE
     Indication: PRODUCT USED FOR UNKNOWN INDICATION
     Dosage: (2 INHALATIONER 2 GONGER DAGLIGEN) 160 MIKROGRAM/4,5 MIKROGRAM/INHALATION INHALATIONSPU
     Route: 065
     Dates: start: 20190206
  15. TROMBYL [Concomitant]
     Active Substance: ASPIRIN
     Indication: PRODUCT USED FOR UNKNOWN INDICATION
     Dosage: 75 MG,QD
     Route: 065
     Dates: start: 20170908
  16. ALVEDON [Concomitant]
     Active Substance: ACETAMINOPHEN
     Indication: PRODUCT USED FOR UNKNOWN INDICATION
     Dosage: 2 DF, PRN (2 TABLETTER VID BEHOV 3G?NGER DAGLIGEN)
     Route: 065
     Dates: start: 20200812
  17. INOLAXOL [Concomitant]
     Active Substance: HERBALS\KARAYA GUM
     Indication: PRODUCT USED FOR UNKNOWN INDICATION
     Dosage: 1 UNK,QD
     Route: 065
     Dates: start: 20200924
  18. BETNOVAT [Concomitant]
     Active Substance: BETAMETHASONE
     Indication: PRODUCT USED FOR UNKNOWN INDICATION
     Dosage: 2 UNK,QD
     Route: 065
     Dates: start: 20170929
  19. MINIDERM [Concomitant]
     Indication: PRODUCT USED FOR UNKNOWN INDICATION
     Dosage: 2 UNK,QD
     Route: 065
     Dates: start: 20170907

REACTIONS (3)
  - Gastrointestinal oedema [Fatal]
  - Gastrointestinal mucosal necrosis [Fatal]
  - Small intestinal haemorrhage [Fatal]

NARRATIVE: CASE EVENT DATE: 202010
